FAERS Safety Report 7432136-5 (Version None)
Quarter: 2011Q1

REPORT INFORMATION
  Report Type: 
  Country: None (occurrence: None)
  Receive Date: 20110302
  Receipt Date: 20101207
  Transmission Date: 20110831
  Serious: No
  Sender: FDA-Public Use
  Company Number: 8048922

PATIENT
  Sex: Female
  Weight: 59 kg

DRUGS (8)
  1. PANTOPRAZOLE [Concomitant]
  2. PROTONIX [Concomitant]
  3. VITAMIN B-12 [Concomitant]
  4. PREDNISONE [Concomitant]
  5. FOLIC ACID [Concomitant]
  6. CERTOLIZUMAB PEGOL [Suspect]
     Indication: CROHN'S DISEASE
     Dosage: 400 MG 1X/MONTH SUBCUTANEOUS
     Route: 058
     Dates: start: 20081116
  7. LEXAPRO [Concomitant]
  8. METOCLOPRAMIDE [Concomitant]

REACTIONS (2)
  - INJECTION SITE PRURITUS [None]
  - INJECTION SITE PAIN [None]
